FAERS Safety Report 7913934-8 (Version None)
Quarter: 2011Q4

REPORT INFORMATION
  Report Type: 
  Country: None (occurrence: None)
  Receive Date: 20111115
  Receipt Date: 20111110
  Transmission Date: 20120403
  Serious: Yes (Congenital Anomaly, Other)
  Sender: FDA-Public Use
  Company Number: US-PFIZER INC-2011105760

PATIENT
  Sex: Female
  Weight: 2.6 kg

DRUGS (6)
  1. ZOLOFT [Suspect]
     Dosage: 50 MG, UNK
     Route: 064
     Dates: start: 20020101
  2. LANOXIN [Concomitant]
     Indication: ATRIAL FIBRILLATION
     Dosage: 0.25 MG, 1X/DAY
     Route: 064
  3. AMBIEN [Concomitant]
     Dosage: 10 MG, AS NEEDED
     Route: 064
  4. ACETAMINOPHEN [Concomitant]
     Indication: PAIN
     Dosage: 325 MG, 2X/DAY
     Route: 064
  5. NORPACE [Concomitant]
     Dosage: 100 MG, 2X/DAY
     Route: 064
  6. LOPRESSOR [Concomitant]
     Dosage: 625 MG, EVERY 6 HOURS
     Route: 064

REACTIONS (5)
  - FOETAL EXPOSURE DURING PREGNANCY [None]
  - CLEFT PALATE [None]
  - HIP DYSPLASIA [None]
  - CLEFT LIP [None]
  - ATRIAL SEPTAL DEFECT [None]
